FAERS Safety Report 7465554-X (Version None)
Quarter: 2011Q2

REPORT INFORMATION
  Report Type: 
  Country: None (occurrence: None)
  Receive Date: 20110509
  Receipt Date: 20110502
  Transmission Date: 20111010
  Serious: Yes (Other)
  Sender: FDA-Public Use
  Company Number: BR-ROCHE-774833

PATIENT
  Sex: Male
  Weight: 66 kg

DRUGS (6)
  1. RITUXAN [Suspect]
     Route: 065
     Dates: start: 20100601, end: 20110407
  2. CONDROFLEX [Concomitant]
  3. PRELONE [Concomitant]
  4. CALTRATE [Concomitant]
  5. INTERFERON ALFA [Suspect]
     Indication: HEPATITIS C
     Route: 065
  6. OMEPRAZOLE [Concomitant]

REACTIONS (2)
  - HEPATITIS C [None]
  - VIRAL LOAD INCREASED [None]
